FAERS Safety Report 11119310 (Version 6)
Quarter: 2017Q1

REPORT INFORMATION
  Report Type: Spontaneous
  Country: US (occurrence: US)
  Receive Date: 20150518
  Receipt Date: 20170314
  Transmission Date: 20170428
  Serious: Yes (Other)
  Sender: FDA-Public Use
  Company Number: US-PFIZER INC-2015165817

PATIENT
  Age: 64 Year
  Sex: Female
  Weight: 76 kg

DRUGS (9)
  1. FLAXSEED [Concomitant]
     Active Substance: FLAX SEED
     Dosage: 2000 MG, DAILY
  2. ESTROGEN [Concomitant]
     Route: 061
  3. PROGESTERONE. [Concomitant]
     Active Substance: PROGESTERONE
     Dosage: 200 MG, UNK
     Route: 061
  4. COQ 10 [Concomitant]
     Active Substance: UBIDECARENONE
     Dosage: UNK
  5. GENOTROPIN [Suspect]
     Active Substance: SOMATROPIN
     Dosage: UNK
  6. GENOTROPIN [Suspect]
     Active Substance: SOMATROPIN
     Indication: HYPOPITUITARISM
     Dosage: 0.2 MG, UNK
     Dates: start: 2006
  7. GENOTROPIN [Suspect]
     Active Substance: SOMATROPIN
     Dosage: UNK
  8. GENOTROPIN [Suspect]
     Active Substance: SOMATROPIN
     Indication: HYPOTHYROIDISM
     Dosage: 0.02 MG, 6 DAYS A WEEK
  9. BIESTROGEN [Concomitant]
     Dosage: UNK

REACTIONS (25)
  - Mood altered [Unknown]
  - Fatigue [Unknown]
  - Insomnia [Unknown]
  - Quality of life decreased [Unknown]
  - Incorrect product storage [Recovering/Resolving]
  - Myalgia [Unknown]
  - Bone pain [Recovered/Resolved]
  - Disease recurrence [Unknown]
  - Body height decreased [Unknown]
  - Malaise [Recovering/Resolving]
  - Adrenocortical insufficiency acute [Unknown]
  - Peripheral coldness [Unknown]
  - Asthenia [Unknown]
  - Fibromyalgia [Unknown]
  - Stress [Unknown]
  - Feeling abnormal [Unknown]
  - Weight decreased [Unknown]
  - Arthralgia [Recovered/Resolved]
  - Muscle fatigue [Unknown]
  - Depression [Unknown]
  - Dysphonia [Unknown]
  - Hypothyroidism [Unknown]
  - Arthritis [Unknown]
  - Myositis [Unknown]
  - Fasciitis [Unknown]

NARRATIVE: CASE EVENT DATE: 2015
